FAERS Safety Report 11276748 (Version 1)
Quarter: 2015Q3

REPORT INFORMATION
  Report Type: Spontaneous
  Country: JP (occurrence: JP)
  Receive Date: 20150716
  Receipt Date: 20150716
  Transmission Date: 20151125
  Serious: Yes (Other)
  Sender: FDA-Public Use
  Company Number: JP-WATSON-2015-12283

PATIENT
  Age: 39 Year
  Sex: Female

DRUGS (2)
  1. TRANEXAMIC ACID (UNKNOWN) [Suspect]
     Active Substance: TRANEXAMIC ACID
     Dosage: UNK
     Route: 065
  2. TRANEXAMIC ACID (UNKNOWN) [Suspect]
     Active Substance: TRANEXAMIC ACID
     Indication: PRODUCT USED FOR UNKNOWN INDICATION
     Dosage: 250 MG, SINGLE
     Route: 048

REACTIONS (1)
  - Drug eruption [Recovered/Resolved]
